FAERS Safety Report 6269440-2 (Version None)
Quarter: 2009Q3

REPORT INFORMATION
  Report Type: 
  Country: None (occurrence: None)
  Receive Date: 20090715
  Receipt Date: 20080702
  Transmission Date: 20100115
  Serious: No
  Sender: FDA-Public Use
  Company Number: US-TYCO HEALTHCARE/MALLINCKRODT-T200801108

PATIENT

DRUGS (1)
  1. OXYCODONE HCL [Suspect]
     Indication: ARTHRITIS
     Dosage: 15 MG 4X DAILY
     Route: 048
     Dates: start: 19910101, end: 20080701

REACTIONS (5)
  - DIARRHOEA [None]
  - DRUG DEPENDENCE [None]
  - DYSKINESIA [None]
  - HEADACHE [None]
  - VOMITING [None]
